FAERS Safety Report 4323635-3 (Version None)
Quarter: 2004Q1

REPORT INFORMATION
  Report Type: 
  Country: None (occurrence: None)
  Receive Date: 20040326
  Receipt Date: 20040225
  Transmission Date: 20041129
  Serious: Yes (Other)
  Sender: FDA-Public Use
  Company Number: PHFR2004GB01247

PATIENT
  Age: 30 Year
  Sex: Male

DRUGS (3)
  1. CLOZARIL [Suspect]
     Indication: SCHIZOPHRENIA
     Dosage: 600MG/DAY
     Route: 048
     Dates: start: 20031020
  2. CLOZARIL [Suspect]
     Dosage: 550MG/DAY
     Route: 048
  3. MULTI-VITAMINS [Concomitant]

REACTIONS (4)
  - HYPERCHOLESTEROLAEMIA [None]
  - HYPERLIPIDAEMIA [None]
  - NON-CARDIAC CHEST PAIN [None]
  - WEIGHT INCREASED [None]
